FAERS Safety Report 25396001 (Version 2)
Quarter: 2025Q4

REPORT INFORMATION
  Report Type: Spontaneous
  Country: US (occurrence: US)
  Receive Date: 20250604
  Receipt Date: 20251024
  Transmission Date: 20260118
  Serious: Yes (Death)
  Sender: VERTEX
  Company Number: US-VERTEX PHARMACEUTICALS-2025-009168

PATIENT
  Age: 21 Year
  Sex: Female

DRUGS (1)
  1. TRIKAFTA [Suspect]
     Active Substance: ELEXACAFTOR\IVACAFTOR\TEZACAFTOR
     Indication: Cystic fibrosis
     Dosage: REDUCED DOSE; HALF TAB EVERY OTHER DAY
     Route: 048
     Dates: start: 20241208, end: 20250528

REACTIONS (1)
  - Death [Fatal]

NARRATIVE: CASE EVENT DATE: 20250528
